FAERS Safety Report 14692788 (Version 1)
Quarter: 2018Q1

REPORT INFORMATION
  Report Type: Spontaneous
  Country: NL (occurrence: NL)
  Receive Date: 20180329
  Receipt Date: 20180329
  Transmission Date: 20180509
  Serious: Yes (Death, Other)
  Sender: FDA-Public Use
  Company Number: NL-CIPLA LTD.-2018NL13671

PATIENT

DRUGS (11)
  1. ETOPOSIDE. [Suspect]
     Active Substance: ETOPOSIDE
     Indication: NEPHROBLASTOMA
     Dosage: FIRST-LINE TREATMENT, UNK
     Route: 065
  2. DOXORUBICIN HYDROCHLORIDE. [Suspect]
     Active Substance: DOXORUBICIN HYDROCHLORIDE
     Indication: NEPHROBLASTOMA
     Dosage: FIRST-LINE TREATMENT, UNK
     Route: 065
  3. VINCRISTINE [Suspect]
     Active Substance: VINCRISTINE
     Dosage: FIRST-LINE TREATMENT
     Route: 065
  4. CYCLOPHOSPHAMIDE. [Suspect]
     Active Substance: CYCLOPHOSPHAMIDE
     Indication: NEPHROBLASTOMA
     Dosage: FIRST-LINE TREATMENT, UNK
     Route: 065
  5. BEVACIZUMAB. [Suspect]
     Active Substance: BEVACIZUMAB
     Indication: NEPHROBLASTOMA
     Dosage: UNK
     Route: 065
  6. IRINOTECAN [Suspect]
     Active Substance: IRINOTECAN
     Indication: NEPHROBLASTOMA
     Dosage: 50 MG/M^2 PER DAY, 4 CYCLES 5 DAYS PER CYCLE
     Route: 065
  7. CARBOPLATIN. [Suspect]
     Active Substance: CARBOPLATIN
     Indication: NEPHROBLASTOMA
     Dosage: FIRST-LINE TREATMENT, UNK
     Route: 065
  8. TEMOZOLOMIDE. [Suspect]
     Active Substance: TEMOZOLOMIDE
     Indication: NEPHROBLASTOMA
     Dosage: UNK
     Route: 065
  9. ACTINOMYCIN D [Suspect]
     Active Substance: DACTINOMYCIN
     Indication: NEPHROBLASTOMA
     Dosage: PREOPERATIVE TREATMENT
     Route: 065
  10. TOPOTECAN [Suspect]
     Active Substance: TOPOTECAN HYDROCHLORIDE
     Indication: NEPHROBLASTOMA
     Dosage: UNK
     Route: 065
  11. VINCRISTINE [Suspect]
     Active Substance: VINCRISTINE
     Indication: NEPHROBLASTOMA
     Dosage: PREOPERATIVE TREATMENT
     Route: 065

REACTIONS (3)
  - Malignant neoplasm progression [Unknown]
  - Metastasis [Unknown]
  - Nephroblastoma [Fatal]
